FAERS Safety Report 7509894-4 (Version None)
Quarter: 2011Q2

REPORT INFORMATION
  Report Type: 
  Country: None (occurrence: None)
  Receive Date: 20110519
  Receipt Date: 20110505
  Transmission Date: 20111010
  Serious: Yes (Hospitalization)
  Sender: FDA-Public Use
  Company Number: 2011MA005452

PATIENT
  Age: 49 Year
  Sex: Male

DRUGS (1)
  1. VENLAFAXINE HYDROCHLORIDE [Suspect]
     Indication: DEPRESSION
     Dosage: 150 MG;QD
     Dates: start: 20060301

REACTIONS (8)
  - CARDIOGENIC SHOCK [None]
  - CONGESTIVE CARDIOMYOPATHY [None]
  - BRAIN NATRIURETIC PEPTIDE INCREASED [None]
  - LEFT VENTRICULAR HYPERTROPHY [None]
  - CARDIOMEGALY [None]
  - ELECTROCARDIOGRAM T WAVE INVERSION [None]
  - DILATATION VENTRICULAR [None]
  - PULMONARY OEDEMA [None]
